FAERS Safety Report 7805659-4 (Version None)
Quarter: 2011Q4

REPORT INFORMATION
  Report Type: 
  Country: None (occurrence: None)
  Receive Date: 20111011
  Receipt Date: 20111003
  Transmission Date: 20120403
  Serious: Yes (Other)
  Sender: FDA-Public Use
  Company Number: US-AMGEN-USASP2011051010

PATIENT
  Age: 88 Year
  Sex: Female

DRUGS (4)
  1. ENBREL [Suspect]
     Indication: RHEUMATOID ARTHRITIS
     Dosage: UNK
  2. METHOTREXATE [Concomitant]
     Indication: RHEUMATOID ARTHRITIS
  3. IRON [Concomitant]
     Indication: ANAEMIA
  4. EPOGEN [Suspect]
     Indication: ANAEMIA

REACTIONS (3)
  - DRUG RESISTANCE [None]
  - ANAEMIA [None]
  - DRUG INEFFECTIVE [None]
